FAERS Safety Report 12114079 (Version 1)
Quarter: 2016Q1

REPORT INFORMATION
  Report Type: Spontaneous
  Country: US (occurrence: None)
  Receive Date: 20160224
  Receipt Date: 20160224
  Transmission Date: 20160526
  Serious: Yes (Life-Threatening, Hospitalization)
  Sender: FDA-Public Use
  Company Number: None

PATIENT
  Age: 37 Year
  Sex: Female
  Weight: 95.9 kg

DRUGS (11)
  1. PREDNISONE. [Concomitant]
     Active Substance: PREDNISONE
  2. PRILOSEC [Concomitant]
     Active Substance: OMEPRAZOLE MAGNESIUM
  3. LYRICA [Concomitant]
     Active Substance: PREGABALIN
  4. ALBUTEROL. [Concomitant]
     Active Substance: ALBUTEROL
  5. XARELTO [Suspect]
     Active Substance: RIVAROXABAN
     Indication: ATRIAL FIBRILLATION
     Dosage: 1 PILL QD ORAL
     Route: 048
     Dates: start: 20140918, end: 20160207
  6. CLONAZEPAM. [Concomitant]
     Active Substance: CLONAZEPAM
  7. ADVAIR HFA [Concomitant]
     Active Substance: FLUTICASONE PROPIONATE\SALMETEROL XINAFOATE
  8. NORCO [Concomitant]
     Active Substance: ACETAMINOPHEN\HYDROCODONE BITARTRATE
  9. LAMICTAL [Concomitant]
     Active Substance: LAMOTRIGINE
  10. ALDACTONE [Concomitant]
     Active Substance: SPIRONOLACTONE
  11. LOPRESSOR [Concomitant]
     Active Substance: METOPROLOL TARTRATE

REACTIONS (3)
  - Haematocrit decreased [None]
  - Hypotension [None]
  - Haemorrhage [None]

NARRATIVE: CASE EVENT DATE: 20160211
